FAERS Safety Report 21238480 (Version 2)
Quarter: 2022Q3

REPORT INFORMATION
  Report Type: Spontaneous
  Country: DK (occurrence: DK)
  Receive Date: 20220822
  Receipt Date: 20220901
  Transmission Date: 20221027
  Serious: Yes (Hospitalization, Other)
  Sender: FDA-Public Use
  Company Number: None

PATIENT
  Age: 33 Year
  Sex: Male
  Weight: 80 kg

DRUGS (1)
  1. INFLIXIMAB [Suspect]
     Active Substance: INFLIXIMAB
     Indication: Crohn^s disease
     Dosage: DOSE INTERVAL: INITIAL AFTER 2 WEEKS, THEN AFTER 4 WEEKS, AND THEN EVERY 8 WEEKS
     Route: 042
     Dates: start: 20210927, end: 20220112

REACTIONS (2)
  - Drug-induced liver injury [Recovered/Resolved]
  - Eczema asteatotic [Unknown]

NARRATIVE: CASE EVENT DATE: 20211001
